FAERS Safety Report 13640032 (Version 1)
Quarter: 2017Q2

REPORT INFORMATION
  Report Type: Spontaneous
  Country: US (occurrence: US)
  Receive Date: 20170609
  Receipt Date: 20170609
  Transmission Date: 20170830
  Serious: Yes (Other)
  Sender: FDA-Public Use
  Company Number: US-ROCHE-682196

PATIENT
  Age: 68 Year
  Sex: Female

DRUGS (2)
  1. KLONOPIN [Suspect]
     Active Substance: CLONAZEPAM
     Indication: ANXIETY
     Dosage: FORM: PILLS
     Route: 048
     Dates: start: 2003, end: 201001
  2. KLONOPIN [Suspect]
     Active Substance: CLONAZEPAM
     Dosage: DOSE: 1 PILL IN A DAY
     Route: 048

REACTIONS (5)
  - Nausea [Unknown]
  - Tremor [Unknown]
  - Drug use disorder [Unknown]
  - Hallucination [Unknown]
  - Suicidal ideation [Unknown]

NARRATIVE: CASE EVENT DATE: 201001
